FAERS Safety Report 4931506-4 (Version None)
Quarter: 2006Q1

REPORT INFORMATION
  Report Type: 
  Country: None (occurrence: None)
  Receive Date: 20060303
  Receipt Date: 20060216
  Transmission Date: 20060701
  Serious: Yes (Hospitalization)
  Sender: FDA-Public Use
  Company Number: HQWYE908721FEB06

PATIENT
  Sex: Female
  Weight: 43 kg

DRUGS (11)
  1. ENBREL [Suspect]
     Indication: RHEUMATOID ARTHRITIS
     Route: 058
     Dates: start: 20050617, end: 20050701
  2. ISCOTIN [Concomitant]
     Route: 048
     Dates: start: 20050616
  3. SULFASALAZINE [Concomitant]
     Route: 048
  4. PERSANTIN [Concomitant]
  5. MUCOSOLVAN [Concomitant]
  6. PREDONINE [Concomitant]
     Indication: RHEUMATOID ARTHRITIS
  7. PARIET [Concomitant]
  8. MICARDIS [Concomitant]
  9. LEVOTHYROXINE SODIUM [Concomitant]
  10. NORVASC [Concomitant]
  11. ZYLORIC [Concomitant]

REACTIONS (2)
  - C-REACTIVE PROTEIN INCREASED [None]
  - PYREXIA [None]
